FAERS Safety Report 5387026-9 (Version None)
Quarter: 2007Q3

REPORT INFORMATION
  Report Type: 
  Country: None (occurrence: None)
  Receive Date: 20070713
  Receipt Date: 20070704
  Transmission Date: 20080115
  Serious: Yes (Other)
  Sender: FDA-Public Use
  Company Number: US-PFIZER INC-2007056225

PATIENT
  Sex: Female
  Weight: 79.4 kg

DRUGS (9)
  1. CHANTIX [Suspect]
     Indication: SMOKING CESSATION THERAPY
     Dates: start: 20070401, end: 20070627
  2. ALPRAZOLAM [Suspect]
     Indication: STRESS
  3. CALCIUM CHLORIDE [Concomitant]
  4. ANTIOXIDANTS [Concomitant]
  5. FISH OIL [Concomitant]
  6. VITAMIN CAP [Concomitant]
  7. NIZATIDINE [Concomitant]
  8. LISINOPRIL [Concomitant]
  9. FELODIPINE [Concomitant]

REACTIONS (9)
  - BLOOD PRESSURE INCREASED [None]
  - CONFUSIONAL STATE [None]
  - DIZZINESS [None]
  - DRUG EFFECT DECREASED [None]
  - FEELING ABNORMAL [None]
  - HEADACHE [None]
  - INSOMNIA [None]
  - MYALGIA [None]
  - TENSION [None]
